FAERS Safety Report 10207568 (Version 1)
Quarter: 2014Q2

REPORT INFORMATION
  Report Type: Spontaneous
  Country: US (occurrence: US)
  Receive Date: 20140530
  Receipt Date: 20140530
  Transmission Date: 20141212
  Serious: No
  Sender: FDA-Public Use
  Company Number: US-GLAXOSMITHKLINE-A1050237A

PATIENT
  Age: 39 Year
  Sex: Female

DRUGS (3)
  1. VENTOLIN [Suspect]
     Indication: ASTHMA EXERCISE INDUCED
     Dosage: 1PUFF AS REQUIRED
     Route: 055
  2. ADVAIR [Concomitant]
  3. ALLEGRA [Concomitant]

REACTIONS (4)
  - Drug ineffective [Recovered/Resolved]
  - Asthma [Unknown]
  - Overdose [Unknown]
  - Product quality issue [Unknown]
